FAERS Safety Report 17945303 (Version 1)
Quarter: 2020Q2

REPORT INFORMATION
  Report Type: Spontaneous
  Country: US (occurrence: US)
  Receive Date: 20200625
  Receipt Date: 20200625
  Transmission Date: 20200714
  Serious: No
  Sender: FDA-Public Use
  Company Number: US-CADILA HEALTHCARE LIMITED-US-ZYDUS-044635

PATIENT

DRUGS (5)
  1. TAMSULOSIN [Suspect]
     Active Substance: TAMSULOSIN
     Indication: PROSTATOMEGALY
     Dosage: .4 MILLIGRAM,FREQUENCY :EVERY OTHER DAY
     Route: 048
     Dates: start: 20190903, end: 201911
  2. PROPRANOLOL [Concomitant]
     Active Substance: PROPRANOLOL HYDROCHLORIDE
     Indication: HEART RATE IRREGULAR
     Dosage: FREQUENCY :UNKNOWN
     Route: 065
  3. VITAMIN D [Concomitant]
     Active Substance: VITAMIN D NOS
     Indication: PRODUCT USED FOR UNKNOWN INDICATION
     Dosage: FREQUENCY :UNKNOWN
     Route: 065
  4. FENOFIBRATE. [Concomitant]
     Active Substance: FENOFIBRATE
     Indication: PRODUCT USED FOR UNKNOWN INDICATION
     Dosage: FREQUENCY :UNKNOWN
     Route: 065
  5. MULTIVITAMIN [Concomitant]
     Active Substance: VITAMINS
     Indication: PRODUCT USED FOR UNKNOWN INDICATION
     Dosage: FREQUENCY :UNKNOWN
     Route: 065

REACTIONS (5)
  - Diarrhoea [Recovered/Resolved]
  - Somnolence [Recovered/Resolved]
  - Intentional dose omission [Recovered/Resolved]
  - Pruritus [Recovered/Resolved]
  - Dizziness [Recovered/Resolved]

NARRATIVE: CASE EVENT DATE: 201909
